FAERS Safety Report 7652885-3 (Version None)
Quarter: 2011Q3

REPORT INFORMATION
  Report Type: 
  Country: None (occurrence: None)
  Receive Date: 20110728
  Receipt Date: 20110713
  Transmission Date: 20111222
  Serious: Yes (Hospitalization)
  Sender: FDA-Public Use
  Company Number: 1000022404

PATIENT
  Age: 84 Year
  Sex: Female

DRUGS (6)
  1. IKOREL (NICORANDIL) (NICORANDIL) [Concomitant]
  2. SERESTA (OXAZEPAM) (OXAZEPAM) [Concomitant]
  3. OLMESARTAN MEDOXOMIL [Suspect]
     Indication: HYPERTENSION
     Dates: end: 20110522
  4. ESCITALOPRAM [Suspect]
     Indication: DEPRESSION
     Dosage: 20 MG (20 MG, 1 IN 1 D), ORAL
     Route: 048
     Dates: end: 20110522
  5. TRANSIPEG (MACROGOL) [Concomitant]
  6. SECTRAL (ACEBUTOLOL HYDROCHLORIDE) (ACEBUTOLOL HYDROCHLORIDE) [Concomitant]

REACTIONS (8)
  - ASTHENIA [None]
  - BLOOD ELECTROLYTES DECREASED [None]
  - VOMITING [None]
  - HYPOKALAEMIA [None]
  - HYPONATRAEMIA [None]
  - CREATININE RENAL CLEARANCE DECREASED [None]
  - DECREASED APPETITE [None]
  - DIZZINESS [None]
